FAERS Safety Report 4282914-9 (Version None)
Quarter: 2004Q1

REPORT INFORMATION
  Report Type: 
  Country: None (occurrence: None)
  Receive Date: 20040130
  Receipt Date: 20031105
  Transmission Date: 20041129
  Serious: No
  Sender: FDA-Public Use
  Company Number: US-BRISTOL-MYERS SQUIBB COMPANY-12433165

PATIENT
  Age: 29 Year
  Sex: Female

DRUGS (6)
  1. SERZONE [Suspect]
     Indication: DEPRESSION
     Route: 048
     Dates: start: 19991201
  2. IBUPROFEN [Concomitant]
  3. ALESSE [Concomitant]
  4. CEPHALEXIN [Concomitant]
  5. PROMETHAZINE [Concomitant]
  6. ULTRAM [Concomitant]

REACTIONS (3)
  - HEPATIC STEATOSIS [None]
  - HEPATOMEGALY [None]
  - PREGNANCY [None]
